FAERS Safety Report 5871710-4 (Version None)
Quarter: 2008Q3

REPORT INFORMATION
  Report Type: 
  Country: None (occurrence: None)
  Receive Date: 20080902
  Receipt Date: 20060206
  Transmission Date: 20090109
  Serious: Yes (Other)
  Sender: FDA-Public Use
  Company Number: 2008AL009355

PATIENT
  Age: 31 Year
  Sex: Female

DRUGS (7)
  1. PROPRANOLOL [Suspect]
     Indication: MIGRAINE
     Dosage: 80 MG; PO
     Route: 048
     Dates: start: 20051209
  2. RIZATRIPTAN BENZOATE [Concomitant]
  3. ACETYLSALICYLIC ACID SRT [Concomitant]
  4. ACETAMINOPHEN [Concomitant]
  5. KETOPROFEN [Concomitant]
  6. INDOMETHACIN [Concomitant]
  7. MULTI-VITAMINS [Concomitant]

REACTIONS (5)
  - CONFUSIONAL STATE [None]
  - DIZZINESS [None]
  - HEART RATE INCREASED [None]
  - MUSCULAR WEAKNESS [None]
  - SENSATION OF HEAVINESS [None]
